FAERS Safety Report 8454301-0 (Version None)
Quarter: 2012Q2

REPORT INFORMATION
  Report Type: 
  Country: None (occurrence: None)
  Receive Date: 20120620
  Receipt Date: 20120615
  Transmission Date: 20120825
  Serious: No
  Sender: FDA-Public Use
  Company Number: US-B.I. PHARMACEUTICALS,INC./RIDGEFIELD-2012-BP-13828BP

PATIENT
  Sex: Female

DRUGS (11)
  1. VIT C [Concomitant]
  2. PRADAXA [Suspect]
     Indication: CEREBROVASCULAR ACCIDENT PROPHYLAXIS
     Dosage: 300 MG
     Route: 048
     Dates: start: 20120420
  3. ATENOLOL [Concomitant]
     Indication: BLOOD PRESSURE ABNORMAL
  4. CRESTOR [Concomitant]
  5. ASPIRIN [Concomitant]
  6. FISH OIL [Concomitant]
  7. AMLODIPINE [Concomitant]
     Indication: BLOOD PRESSURE ABNORMAL
  8. GLUCOSAMINE MSN [Concomitant]
  9. VITAMIN D [Concomitant]
  10. SYNTHROID [Concomitant]
  11. CALCIUM CARBONATE [Concomitant]

REACTIONS (2)
  - GASTRITIS [None]
  - PAIN IN EXTREMITY [None]
